FAERS Safety Report 7115356-9 (Version None)
Quarter: 2010Q4

REPORT INFORMATION
  Report Type: 
  Country: None (occurrence: None)
  Receive Date: 20101122
  Receipt Date: 20101117
  Transmission Date: 20110411
  Serious: Yes (Death, Life-Threatening, Hospitalization)
  Sender: FDA-Public Use
  Company Number: US-BRISTOL-MYERS SQUIBB COMPANY-15094162

PATIENT
  Age: 73 Year
  Sex: Male
  Weight: 81 kg

DRUGS (4)
  1. ERBITUX [Suspect]
     Indication: NON-SMALL CELL LUNG CANCER
     Dosage: CETUXIMAB 250 MG/M2 DAYS 50,57,64,71,78, 85,92,99,106
     Dates: start: 20100412, end: 20100412
  2. TAXOL [Suspect]
     Indication: NON-SMALL CELL LUNG CANCER
     Dosage: PACLITAXEL 200MG/M2 DAYS 71 AND 92
     Dates: start: 20100405, end: 20100405
  3. CARBOPLATIN [Suspect]
     Indication: NON-SMALL CELL LUNG CANCER
     Dosage: CARBOPLATIN AUC=6 DAYS 71 AND 92
     Dates: start: 20100405, end: 20100405
  4. RADIATION THERAPY [Suspect]
     Indication: NON-SMALL CELL LUNG CANCER
     Dosage: 1 DF = 60 GY. NO OF FRACTIONS:30. NO OF ELASPSED DAYS:43. EXTERNAL BEAM, 3D LAST TREAT:23FEB2010
     Dates: end: 20100223

REACTIONS (15)
  - ABDOMINAL PAIN UPPER [None]
  - BLOOD ALBUMIN DECREASED [None]
  - BLOOD CHLORIDE INCREASED [None]
  - BLOOD GLUCOSE INCREASED [None]
  - BLOOD SODIUM INCREASED [None]
  - BLOOD UREA INCREASED [None]
  - BRADYCARDIA [None]
  - CARDIO-RESPIRATORY ARREST [None]
  - CONFUSIONAL STATE [None]
  - COUGH [None]
  - DYSPNOEA [None]
  - EMBOLISM ARTERIAL [None]
  - FATIGUE [None]
  - HAEMOGLOBIN DECREASED [None]
  - RESPIRATORY FAILURE [None]
